FAERS Safety Report 6133519-6 (Version None)
Quarter: 2009Q1

REPORT INFORMATION
  Report Type: 
  Country: None (occurrence: None)
  Receive Date: 20090326
  Receipt Date: 20090324
  Transmission Date: 20090719
  Serious: Yes (Death)
  Sender: FDA-Public Use
  Company Number: JP-ASTRAZENECA-2009AP01907

PATIENT
  Age: 60 Year
  Sex: Female
  Weight: 61 kg

DRUGS (8)
  1. IRESSA [Suspect]
     Indication: LUNG ADENOCARCINOMA
     Route: 048
     Dates: start: 20081205, end: 20090107
  2. CODEINE PHOSPHATE [Concomitant]
     Indication: COUGH
     Route: 048
     Dates: start: 20081031, end: 20090109
  3. HEAVY MAGNESIUM OXIDE [Concomitant]
     Indication: CONSTIPATION
     Route: 048
     Dates: start: 20081031, end: 20090109
  4. MUCOSTA [Concomitant]
     Indication: GASTRITIS
     Route: 048
     Dates: start: 20081031, end: 20090109
  5. FENTANYL [Concomitant]
     Indication: PAIN
     Route: 062
     Dates: start: 20081114, end: 20090118
  6. OPSO [Concomitant]
     Indication: PAIN
     Dosage: AS REQUIRED.
     Route: 048
     Dates: start: 20081114, end: 20090118
  7. LENDORMIN D [Concomitant]
     Indication: INSOMNIA
     Dosage: AS REQUIRED.
     Route: 048
     Dates: start: 20081209, end: 20090118
  8. TOCLASE [Concomitant]
     Indication: COUGH
     Route: 048
     Dates: start: 20081220, end: 20090109

REACTIONS (1)
  - LUNG DISORDER [None]
